FAERS Safety Report 11343589 (Version 3)
Quarter: 2015Q3

REPORT INFORMATION
  Report Type: Spontaneous
  Country: GB (occurrence: GB)
  Receive Date: 20150804
  Receipt Date: 20150903
  Transmission Date: 20151125
  Serious: Yes (Other)
  Sender: FDA-Public Use
  Company Number: GB-H14001-15-01410

PATIENT
  Age: 52 Year
  Sex: Male

DRUGS (2)
  1. PHENYTOIN. [Suspect]
     Active Substance: PHENYTOIN
     Indication: EPILEPSY
     Route: 065
  2. PHENYTOIN. [Suspect]
     Active Substance: PHENYTOIN
     Route: 065

REACTIONS (6)
  - Blood testosterone increased [Unknown]
  - Alanine aminotransferase increased [Recovering/Resolving]
  - Seizure [Unknown]
  - Liver function test abnormal [Recovering/Resolving]
  - Therapy change [Unknown]
  - Adverse event [Unknown]
